FAERS Safety Report 10975089 (Version 1)
Quarter: 2015Q2

REPORT INFORMATION
  Report Type: Spontaneous
  Country: PT (occurrence: PT)
  Receive Date: 20150401
  Receipt Date: 20150401
  Transmission Date: 20150821
  Serious: Yes (Hospitalization)
  Sender: FDA-Public Use
  Company Number: PT-ASTRAZENECA-2015SE29943

PATIENT
  Age: 70 Year
  Sex: Male

DRUGS (14)
  1. EZETIMIBE. [Concomitant]
     Active Substance: EZETIMIBE
  2. WARFARIN [Concomitant]
     Active Substance: WARFARIN
  3. PENTOXIFYLLINE. [Concomitant]
     Active Substance: PENTOXIFYLLINE
  4. ESCITALOPRAM [Concomitant]
     Active Substance: ESCITALOPRAM OXALATE
  5. ATORVASTATIN [Concomitant]
     Active Substance: ATORVASTATIN
  6. PAROXETINE [Concomitant]
     Active Substance: PAROXETINE\PAROXETINE HYDROCHLORIDE
  7. BRILIQUE [Suspect]
     Active Substance: TICAGRELOR
     Route: 048
  8. BETA-BLOCKERS [Concomitant]
  9. VITAMIN K ANTAGONISTS [Concomitant]
     Active Substance: UNSPECIFIED INGREDIENT
  10. MEXAZOLAM [Concomitant]
     Active Substance: MEXAZOLAM
  11. IVABRADINE [Concomitant]
     Active Substance: IVABRADINE
  12. TRIFLUSAL [Concomitant]
     Active Substance: TRIFLUSAL
  13. NEBIVOLOL [Concomitant]
     Active Substance: NEBIVOLOL
  14. STATIN [Concomitant]
     Active Substance: UNSPECIFIED INGREDIENT

REACTIONS (1)
  - Acute myocardial infarction [Unknown]
